FAERS Safety Report 4973890-1 (Version None)
Quarter: 2006Q2

REPORT INFORMATION
  Report Type: 
  Country: None (occurrence: None)
  Receive Date: 20060417
  Receipt Date: 20060223
  Transmission Date: 20061013
  Serious: Yes (Hospitalization)
  Sender: FDA-Public Use
  Company Number: 2006UW03130

PATIENT
  Age: 85 Year
  Sex: Female

DRUGS (8)
  1. CRESTOR [Suspect]
     Route: 048
  2. METFORMIN [Concomitant]
  3. GLYBURIDE [Concomitant]
  4. AVANDIA [Concomitant]
  5. INDAPAMIDE [Concomitant]
  6. MICARDIS [Concomitant]
  7. TYLENOL (CAPLET) [Concomitant]
  8. CLONIDINE [Concomitant]
     Indication: BLOOD PRESSURE SYSTOLIC INCREASED

REACTIONS (9)
  - ANAEMIA [None]
  - BENIGN NEOPLASM OF THYROID GLAND [None]
  - INFLUENZA [None]
  - MAMMARY DUCT ECTASIA [None]
  - MYOGLOBINURIA [None]
  - MYOSITIS [None]
  - RENAL CYST [None]
  - RENAL FAILURE [None]
  - RHABDOMYOLYSIS [None]
